FAERS Safety Report 21292873 (Version 1)
Quarter: 2022Q3

REPORT INFORMATION
  Report Type: Spontaneous
  Country: FR (occurrence: FR)
  Receive Date: 20220905
  Receipt Date: 20220905
  Transmission Date: 20221027
  Serious: Yes (Hospitalization)
  Sender: FDA-Public Use
  Company Number: None

PATIENT
  Age: 72 Year
  Sex: Female
  Weight: 69.5 kg

DRUGS (5)
  1. PREDNISONE [Suspect]
     Active Substance: PREDNISONE
     Indication: Rheumatoid arthritis
     Dosage: UNIT DOSE :  5 MG, FREQUENCY TIME : 1 DAY , THERAPY START DATE : ASKU
     Route: 065
  2. LETROZOLE [Suspect]
     Active Substance: LETROZOLE
     Indication: Breast cancer
     Dosage: UNIT DOSE :  2.5 MG, FREQUENCY TIME : 1 DAY, DURATION :170 DAYS
     Route: 065
     Dates: start: 20220208, end: 20220728
  3. ABEMACICLIB [Suspect]
     Active Substance: ABEMACICLIB
     Indication: Breast cancer
     Dosage: UNIT DOSE :  100MG, STRENGTH  :50 MG , FREQUENCY TIME : 1 DAY , DURATION : 52 DAYS
     Route: 065
     Dates: start: 20220606, end: 20220728
  4. XGEVA [Suspect]
     Active Substance: DENOSUMAB
     Indication: Prophylaxis
     Dosage: STRENGTH  : 120 MG, UNIT DOSE : 1 DOSAGE FORM ,  FREQUENCY TIME : 28 DAYS , THERAPY END DATE : NASK
     Route: 065
     Dates: start: 20220308
  5. COVERAM [Suspect]
     Active Substance: AMLODIPINE\PERINDOPRIL
     Indication: Hypertension
     Dosage: STRENGTH  : 10MG/10MG , UNIT DOSE : 1 DOSAGE FORM, FREQUENCY TIME : 1 DAY , THERAPY START DATE : ASK
     Route: 065

REACTIONS (1)
  - Papilloedema [Not Recovered/Not Resolved]

NARRATIVE: CASE EVENT DATE: 20220712
